FAERS Safety Report 8557236-8 (Version None)
Quarter: 2012Q3

REPORT INFORMATION
  Report Type: 
  Country: None (occurrence: None)
  Receive Date: 20120801
  Receipt Date: 20120727
  Transmission Date: 20120928
  Serious: Yes (Hospitalization)
  Sender: FDA-Public Use
  Company Number: PHEH2012US013249

PATIENT
  Sex: Female

DRUGS (1)
  1. GILENYA [Suspect]
     Indication: MULTIPLE SCLEROSIS
     Dosage: 0.5 MG, DAILY
     Route: 048
     Dates: start: 20110715, end: 20111128

REACTIONS (12)
  - BLINDNESS [None]
  - ANGER [None]
  - UNRESPONSIVE TO STIMULI [None]
  - FEELING ABNORMAL [None]
  - VISION BLURRED [None]
  - DISTURBANCE IN ATTENTION [None]
  - SLOW SPEECH [None]
  - AGITATION [None]
  - WHITE BLOOD CELL COUNT DECREASED [None]
  - AGGRESSION [None]
  - SPEECH DISORDER [None]
  - IMPAIRED WORK ABILITY [None]
